FAERS Safety Report 11889720 (Version 5)
Quarter: 2016Q1

REPORT INFORMATION
  Report Type: Spontaneous
  Country: US (occurrence: US)
  Receive Date: 20160105
  Receipt Date: 20160309
  Transmission Date: 20160526
  Serious: Yes (Hospitalization, Other)
  Sender: FDA-Public Use
  Company Number: US-ELI_LILLY_AND_COMPANY-US201512008426

PATIENT
  Age: 46 Year
  Sex: Female
  Weight: 61.22 kg

DRUGS (15)
  1. CEFAZOLIN [Concomitant]
     Active Substance: CEFAZOLIN
     Dosage: UNK, UNKNOWN
     Route: 065
  2. AMBRISENTAN [Suspect]
     Active Substance: AMBRISENTAN
     Indication: PULMONARY ARTERIAL HYPERTENSION
     Dosage: 10 MG, QD
     Route: 065
     Dates: start: 20151027
  3. POTASSIUM                          /00209301/ [Concomitant]
     Active Substance: POTASSIUM BICARBONATE\POTASSIUM CHLORIDE
     Dosage: UNK, UNKNOWN
     Route: 065
  4. AMBRISENTAN [Suspect]
     Active Substance: AMBRISENTAN
     Dosage: 10 MG, QD
     Route: 065
     Dates: start: 20151027
  5. COUMADIN [Suspect]
     Active Substance: WARFARIN SODIUM
     Indication: PRODUCT USED FOR UNKNOWN INDICATION
     Dosage: UNK UNK, UNKNOWN
     Route: 065
  6. REMODULIN [Suspect]
     Active Substance: TREPROSTINIL
     Dosage: 0.00760 UG/KG
     Route: 058
  7. GABAPENTIN. [Concomitant]
     Active Substance: GABAPENTIN
     Dosage: UNK, UNKNOWN
     Route: 065
  8. VITAMIN B12 [Concomitant]
     Active Substance: CYANOCOBALAMIN
     Dosage: UNK, UNKNOWN
     Route: 065
  9. TORSEMIDE. [Concomitant]
     Active Substance: TORSEMIDE
     Dosage: UNK, UNKNOWN
     Route: 065
  10. ADCIRCA [Suspect]
     Active Substance: TADALAFIL
     Indication: PRODUCT USED FOR UNKNOWN INDICATION
     Dosage: UNK UNK, UNKNOWN
     Route: 065
  11. REMODULIN [Suspect]
     Active Substance: TREPROSTINIL
     Indication: PULMONARY ARTERIAL HYPERTENSION
     Dosage: 165.5 NG/KG/MIN
     Route: 042
     Dates: start: 20120727
  12. REMODULIN [Suspect]
     Active Substance: TREPROSTINIL
     Dosage: 0.1595 UG/KG
     Route: 042
  13. CHLORAPREP [Suspect]
     Active Substance: CHLORHEXIDINE GLUCONATE\ISOPROPYL ALCOHOL
     Indication: PRODUCT USED FOR UNKNOWN INDICATION
     Dosage: UNK, UNKNOWN
  14. PRENATAL VITAMINS                  /02014401/ [Concomitant]
     Active Substance: VITAMINS
     Dosage: UNK, UNKNOWN
     Route: 065
  15. VITAMIN D3 [Concomitant]
     Active Substance: CHOLECALCIFEROL
     Dosage: UNK, UNKNOWN
     Route: 065

REACTIONS (7)
  - Staphylococcal infection [Recovering/Resolving]
  - Pain [Unknown]
  - Dermatitis contact [Unknown]
  - Device related infection [Recovering/Resolving]
  - Device dislocation [Unknown]
  - Thrombosis in device [Unknown]
  - Nausea [Unknown]

NARRATIVE: CASE EVENT DATE: 201511
